FAERS Safety Report 4929715-3 (Version None)
Quarter: 2006Q1

REPORT INFORMATION
  Report Type: 
  Country: None (occurrence: None)
  Receive Date: 20060224
  Receipt Date: 20060209
  Transmission Date: 20060701
  Serious: Yes (Life-Threatening, Hospitalization)
  Sender: FDA-Public Use
  Company Number: 2006S1001193

PATIENT
  Sex: Male

DRUGS (2)
  1. METHOTREXATE [Suspect]
     Indication: FELTY'S SYNDROME
     Dosage: 10 MG;QW;ORAL
     Route: 048
     Dates: start: 20060101
  2. PREDNISONE [Concomitant]

REACTIONS (3)
  - LEUKAEMIA [None]
  - MYOCARDIAL INFARCTION [None]
  - THROMBOCYTOPENIA [None]
